FAERS Safety Report 22308527 (Version 1)
Quarter: 2023Q2

REPORT INFORMATION
  Report Type: Spontaneous
  Country: FR (occurrence: FR)
  Receive Date: 20230511
  Receipt Date: 20230511
  Transmission Date: 20230722
  Serious: Yes (Other)
  Sender: FDA-Public Use
  Company Number: None

PATIENT
  Age: 45 Year
  Sex: Female
  Weight: 53 kg

DRUGS (1)
  1. MIRENA [Suspect]
     Active Substance: LEVONORGESTREL
     Indication: Intrauterine contraception
     Dosage: 20?G/DAY
     Route: 015
     Dates: start: 20220321, end: 20220506

REACTIONS (9)
  - Arthralgia [Recovered/Resolved]
  - Depression [Recovered/Resolved]
  - Weight increased [Recovering/Resolving]
  - Fatigue [Recovered/Resolved]
  - Constipation [Recovered/Resolved]
  - Headache [Recovered/Resolved]
  - Loss of libido [Recovering/Resolving]
  - Sleep disorder [Recovered/Resolved]
  - Menometrorrhagia [Recovered/Resolved]

NARRATIVE: CASE EVENT DATE: 20220401
